FAERS Safety Report 15608046 (Version 1)
Quarter: 2018Q4

REPORT INFORMATION
  Report Type: Spontaneous
  Country: US (occurrence: US)
  Receive Date: 20181112
  Receipt Date: 20181112
  Transmission Date: 20190205
  Serious: Yes (Hospitalization)
  Sender: FDA-Public Use
  Company Number: US-VIFOR (INTERNATIONAL) INC.-VIT-2018-10974

PATIENT
  Sex: Female

DRUGS (32)
  1. HEPARIN SODIUM (PORCINE) [Concomitant]
  2. LOPERAMIDE HCL [Concomitant]
     Active Substance: LOPERAMIDE HYDROCHLORIDE
  3. PREDNISONE. [Concomitant]
     Active Substance: PREDNISONE
  4. RANITIDINE HCL [Concomitant]
     Active Substance: RANITIDINE HYDROCHLORIDE
  5. TIGAN [Concomitant]
     Active Substance: TRIMETHOBENZAMIDE HYDROCHLORIDE
  6. NORVASC [Concomitant]
     Active Substance: AMLODIPINE BESYLATE
  7. DIALYVITE [Concomitant]
     Active Substance: ASCORBIC ACID\BIOTIN\CALCIUM PANTOTHENATE\COBALAMIN\FOLIC ACID\NIACINAMIDE\PYRIDOXINE HYDROCHLORIDE\RIBOFLAVIN\THIAMINE MONONITRATE
  8. FOLIC ACID. [Concomitant]
     Active Substance: FOLIC ACID
  9. LIDOCAINE. [Concomitant]
     Active Substance: LIDOCAINE
  10. NEURONTIN [Concomitant]
     Active Substance: GABAPENTIN
  11. ROBAXIN [Concomitant]
     Active Substance: METHOCARBAMOL
  12. TYLENOL [Concomitant]
     Active Substance: ACETAMINOPHEN
  13. VELTASSA [Suspect]
     Active Substance: PATIROMER
     Indication: HYPERKALAEMIA
     Route: 048
     Dates: start: 20160922
  14. ATIVAN [Concomitant]
     Active Substance: LORAZEPAM
  15. CALCIUM CARBONATE. [Concomitant]
     Active Substance: CALCIUM CARBONATE
  16. IMODIUM A-D [Concomitant]
     Active Substance: LOPERAMIDE HYDROCHLORIDE
  17. LIQUACEL [Concomitant]
  18. METOPROLOL SUCCINATE ER [Concomitant]
     Active Substance: METOPROLOL SUCCINATE
  19. ARANESP (ALBUMIN FREE) [Concomitant]
  20. KAYEXALATE [Concomitant]
     Active Substance: SODIUM POLYSTYRENE SULFONATE
  21. METOPROLOL TARTRATE. [Concomitant]
     Active Substance: METOPROLOL TARTRATE
  22. SENSIPAR [Concomitant]
     Active Substance: CINACALCET HYDROCHLORIDE
  23. BENADRYL [Concomitant]
     Active Substance: DIPHENHYDRAMINE HYDROCHLORIDE
  24. CALCIUM ACETATE. [Concomitant]
     Active Substance: CALCIUM ACETATE
  25. DOXERCALCIFEROL. [Concomitant]
     Active Substance: DOXERCALCIFEROL
  26. LISINOPRIL. [Concomitant]
     Active Substance: LISINOPRIL
  27. RENVELA [Concomitant]
     Active Substance: SEVELAMER CARBONATE
  28. FISH OIL CONCENTRATE [Concomitant]
     Active Substance: FISH OIL
  29. NORMAL SALINE FLUSH [Concomitant]
     Active Substance: SODIUM CHLORIDE
  30. TEGRETOL [Concomitant]
     Active Substance: CARBAMAZEPINE
  31. VITAMIN D2 [Concomitant]
     Active Substance: ERGOCALCIFEROL
  32. CLONAZEPAM. [Concomitant]
     Active Substance: CLONAZEPAM

REACTIONS (2)
  - Off label use [Unknown]
  - Pneumonia [Unknown]
